FAERS Safety Report 23486015 (Version 1)
Quarter: 2024Q1

REPORT INFORMATION
  Report Type: Spontaneous
  Country: DE (occurrence: DE)
  Receive Date: 20240206
  Receipt Date: 20240206
  Transmission Date: 20240410
  Serious: Yes (Hospitalization)
  Sender: FDA-Public Use
  Company Number: DE-SA-SAC20230609001148

PATIENT
  Age: 55 Year
  Sex: Male
  Weight: 81 kg

DRUGS (54)
  1. CARFILZOMIB [Suspect]
     Active Substance: CARFILZOMIB
     Dosage: 110 MG (FREQUENCY: 6 TIMES 1,2,8,9,15,16)
     Route: 065
     Dates: start: 20230221, end: 20230308
  2. CARFILZOMIB [Suspect]
     Active Substance: CARFILZOMIB
     Dosage: 110 MG (FREQUENCY: 6 TIMES 1,2,8,9,15,16)
     Route: 065
     Dates: start: 20230418, end: 20230503
  3. CARFILZOMIB [Suspect]
     Active Substance: CARFILZOMIB
     Dosage: 110 MG (FREQUENCY: 6 TIMES 1,2,8,9,15,16)
     Route: 065
     Dates: start: 20230516, end: 20230606
  4. CARFILZOMIB [Suspect]
     Active Substance: CARFILZOMIB
     Dosage: 110 MG (FREQUENCY: 6 TIMES 1,2,8,9,15,16)
     Route: 065
     Dates: start: 20230619, end: 20230707
  5. CARFILZOMIB [Suspect]
     Active Substance: CARFILZOMIB
     Dosage: 110 MG (FREQUENCY: 6 TIMES 1,2,8,9,15,16)
     Route: 065
     Dates: start: 20230911, end: 20230926
  6. CARFILZOMIB [Suspect]
     Active Substance: CARFILZOMIB
     Dosage: 110 MG (FREQUENCY: 6 TIMES1,2,8,9,15,16)
     Route: 065
     Dates: start: 20230717, end: 20230801
  7. CARFILZOMIB [Suspect]
     Active Substance: CARFILZOMIB
     Dosage: 110 MG (FREQUENCY: 6TIMES 1,2,8,9,15,16)
     Route: 065
     Dates: start: 20230124, end: 20230208
  8. CARFILZOMIB [Suspect]
     Active Substance: CARFILZOMIB
     Dosage: 110 MG (FREQUENCY: 8 TIMES 1,2,8,9,15,16))
     Route: 065
     Dates: start: 20230814, end: 20230829
  9. CARFILZOMIB [Suspect]
     Active Substance: CARFILZOMIB
     Dosage: 110 MG (FREQUNCY: 6 TIMES 1,2,8,9,15,16)
     Route: 065
     Dates: start: 20230321, end: 20230405
  10. CARFILZOMIB [Suspect]
     Active Substance: CARFILZOMIB
     Indication: Plasma cell myeloma refractory
     Dosage: 39 MG, Q12H
     Route: 065
     Dates: start: 20221227, end: 20221228
  11. CARFILZOMIB [Suspect]
     Active Substance: CARFILZOMIB
     Dosage: 82 MG, 4TIMES 8,9,15,16
     Route: 065
     Dates: start: 20230103, end: 20230112
  12. DEXAMETHASONE [Suspect]
     Active Substance: DEXAMETHASONE
     Dosage: 20 MG (FREQUENCY: 6 TIMES 1,2,8,9,15,16)
     Route: 065
     Dates: start: 20230321, end: 20230405
  13. DEXAMETHASONE [Suspect]
     Active Substance: DEXAMETHASONE
     Dosage: 20 MG (FREQUENCY: 6 TIMES 1,2,8,9,15,16)
     Route: 065
     Dates: start: 20230418, end: 20230503
  14. DEXAMETHASONE [Suspect]
     Active Substance: DEXAMETHASONE
     Dosage: 20 MG (FREQUENCY: 6 TIMES 1,2,8,9,15,16)
     Route: 065
     Dates: start: 20230516, end: 20230606
  15. DEXAMETHASONE [Suspect]
     Active Substance: DEXAMETHASONE
     Indication: Plasma cell myeloma refractory
     Dosage: 20 MG (FREQUENCY: 6TIMES 1,2,8,9,15,16)
     Route: 065
     Dates: start: 20221227, end: 20230112
  16. DEXAMETHASONE [Suspect]
     Active Substance: DEXAMETHASONE
     Dosage: 20 MG (FREQUENCY: 8 TIMES 1,2,8,9,15,16,22,23)
     Route: 065
     Dates: start: 20230619, end: 20230711
  17. DEXAMETHASONE [Suspect]
     Active Substance: DEXAMETHASONE
     Dosage: 20 MG (FREQUENCY: 8 TIMES 1,2,8,9,15,16,22,23)
     Route: 065
     Dates: start: 20230814, end: 20230905
  18. DEXAMETHASONE [Suspect]
     Active Substance: DEXAMETHASONE
     Dosage: 20 MG (FREQUENCY: 8 TIMES1,2,8,9,15,16,22,23)
     Route: 065
     Dates: start: 20230717, end: 20230808
  19. DEXAMETHASONE [Suspect]
     Active Substance: DEXAMETHASONE
     Dosage: 20 MG (FREQUENCY; 6 TIMES 1,2,8,9,15,16)
     Route: 065
     Dates: start: 20230221, end: 20230308
  20. DEXAMETHASONE [Suspect]
     Active Substance: DEXAMETHASONE
     Dosage: 20 MG (FREQUNCY: 6TIMES 1,2,8,9,15,16)
     Route: 065
     Dates: start: 20230124, end: 20230208
  21. DEXAMETHASONE [Suspect]
     Active Substance: DEXAMETHASONE
     Dosage: 20 MG, 6ID
     Route: 065
     Dates: start: 20230911, end: 20230926
  22. ISATUXIMAB [Suspect]
     Active Substance: ISATUXIMAB
     Dosage: 800 MG, BIW
     Route: 065
     Dates: start: 20230124, end: 20230207
  23. ISATUXIMAB [Suspect]
     Active Substance: ISATUXIMAB
     Dosage: 800 MG, BIW
     Route: 065
     Dates: start: 20230221, end: 20230307
  24. ISATUXIMAB [Suspect]
     Active Substance: ISATUXIMAB
     Dosage: 800 MG, BIW
     Route: 065
     Dates: start: 20230321, end: 20230404
  25. ISATUXIMAB [Suspect]
     Active Substance: ISATUXIMAB
     Dosage: 800 MG, BIW
     Route: 065
     Dates: start: 20230418, end: 20230502
  26. ISATUXIMAB [Suspect]
     Active Substance: ISATUXIMAB
     Dosage: 800 MG, BIW
     Route: 065
     Dates: start: 20230516, end: 20230605
  27. ISATUXIMAB [Suspect]
     Active Substance: ISATUXIMAB
     Dosage: 800 MG, BIW
     Route: 065
     Dates: start: 20230619, end: 20230703
  28. ISATUXIMAB [Suspect]
     Active Substance: ISATUXIMAB
     Dosage: 800 MG, BIW
     Route: 065
     Dates: start: 20230717, end: 20230731
  29. ISATUXIMAB [Suspect]
     Active Substance: ISATUXIMAB
     Dosage: 800 MG, BIW
     Route: 065
     Dates: start: 20230814, end: 20230828
  30. ISATUXIMAB [Suspect]
     Active Substance: ISATUXIMAB
     Dosage: 800 MG, BIW
     Route: 065
     Dates: start: 20230911
  31. ISATUXIMAB [Suspect]
     Active Substance: ISATUXIMAB
     Indication: Plasma cell myeloma refractory
     Dosage: 800 MG, QW
     Route: 065
     Dates: start: 20221227, end: 20230119
  32. ASPIRIN [Concomitant]
     Active Substance: ASPIRIN
     Indication: Product used for unknown indication
     Dosage: UNK
     Route: 065
     Dates: start: 2017, end: 2023
  33. SODIUM BICARBONATE [Concomitant]
     Active Substance: SODIUM BICARBONATE
     Indication: Product used for unknown indication
     Dosage: UNK
     Route: 065
     Dates: end: 2023
  34. BISOPROLOL [Concomitant]
     Active Substance: BISOPROLOL\BISOPROLOL FUMARATE
     Indication: Product used for unknown indication
     Dosage: UNK
     Route: 065
  35. CLEMASTINE [Concomitant]
     Active Substance: CLEMASTINE
     Indication: Product used for unknown indication
     Dosage: UNK
     Route: 065
     Dates: start: 20231007, end: 2023
  36. CLONIDINE [Concomitant]
     Active Substance: CLONIDINE
     Indication: Product used for unknown indication
     Dosage: UNK
     Route: 065
     Dates: start: 2023, end: 20231007
  37. COBALAMIN [Concomitant]
     Active Substance: COBALAMIN
     Indication: Product used for unknown indication
     Dosage: UNK
     Route: 065
     Dates: start: 2023
  38. CHOLECALCIFEROL [Concomitant]
     Active Substance: CHOLECALCIFEROL
     Indication: Product used for unknown indication
     Dosage: UNK
     Route: 065
  39. DEXAMETHASONE [Concomitant]
     Active Substance: DEXAMETHASONE
     Indication: Prophylaxis
     Dosage: UNK (FREQUENCY: 6 TIMES 1,2,8,9,15,16
     Route: 065
     Dates: start: 20230120
  40. EMPAGLIFLOZIN [Concomitant]
     Active Substance: EMPAGLIFLOZIN
     Indication: Product used for unknown indication
     Dosage: UNK
     Route: 065
     Dates: start: 2023, end: 20231007
  41. FOLIC ACID [Concomitant]
     Active Substance: FOLIC ACID
     Indication: Product used for unknown indication
     Dosage: UNK
     Route: 065
     Dates: start: 2023
  42. INDAPAMIDE [Concomitant]
     Active Substance: INDAPAMIDE
     Indication: Product used for unknown indication
     Dosage: UNK
     Route: 065
  43. INDOMETHACIN [Concomitant]
     Active Substance: INDOMETHACIN
     Indication: Arthritis
     Dosage: UNK, START DATE: ??-OCT-2023, STOP DATE: 2023
     Route: 065
  44. IPRATROPIUM [Concomitant]
     Active Substance: IPRATROPIUM
     Indication: Product used for unknown indication
     Dosage: UNK
     Route: 065
     Dates: start: 20231007, end: 2023
  45. POTASSIUM IODIDE [Concomitant]
     Active Substance: POTASSIUM IODIDE
     Indication: Product used for unknown indication
     Dosage: UNK
     Route: 065
     Dates: end: 2023
  46. LENALIDOMIDE [Concomitant]
     Active Substance: LENALIDOMIDE
     Indication: Product used for unknown indication
     Dosage: UNK
     Route: 065
     Dates: start: 202301, end: 20230310
  47. LERCANIDIPINE [Concomitant]
     Active Substance: LERCANIDIPINE
     Indication: Product used for unknown indication
     Dosage: UNK
     Route: 065
  48. METAMIZOLE [Concomitant]
     Active Substance: METAMIZOLE
     Indication: Arthritis
     Dosage: UNK
     Route: 065
     Dates: start: 2023
  49. MONTELUKAST [Concomitant]
     Active Substance: MONTELUKAST SODIUM
     Indication: Prophylaxis
     Dosage: UNK (FREQEUNCY: 6 TIMS 1,2,8,9,15,16
     Route: 065
     Dates: start: 20221227
  50. MOXONIDINE [Concomitant]
     Active Substance: MOXONIDINE
     Indication: Product used for unknown indication
     Dosage: UNK
     Route: 065
  51. PREGABALIN [Concomitant]
     Active Substance: PREGABALIN
     Indication: Product used for unknown indication
     Dosage: UNK
     Route: 065
     Dates: start: 20220613, end: 2023
  52. ROCEPHIN [Concomitant]
     Active Substance: CEFTRIAXONE SODIUM
     Indication: Product used for unknown indication
     Dosage: UNK
     Route: 065
     Dates: start: 20231007, end: 202310
  53. TELMISARTAN [Concomitant]
     Active Substance: TELMISARTAN
     Indication: Product used for unknown indication
     Dosage: UNK
     Route: 065
  54. XARELTO [Concomitant]
     Active Substance: RIVAROXABAN
     Indication: Product used for unknown indication
     Dosage: UNK
     Route: 065
     Dates: end: 2023

REACTIONS (11)
  - Cerebellar stroke [Recovered/Resolved with Sequelae]
  - Thrombocytopenia [Recovered/Resolved]
  - Anaemia [Recovered/Resolved]
  - Hemiparesis [Not Recovered/Not Resolved]
  - Urinary tract infection [Recovered/Resolved]
  - Respiratory tract infection [Recovered/Resolved]
  - Hyperkalaemia [Recovered/Resolved]
  - Thrombocytopenia [Recovered/Resolved]
  - Thrombocytopenia [Recovered/Resolved]
  - Thrombocytopenia [Recovered/Resolved]
  - Epilepsy [Recovered/Resolved]

NARRATIVE: CASE EVENT DATE: 20230228
